FAERS Safety Report 22291038 (Version 2)
Quarter: 2023Q2

REPORT INFORMATION
  Report Type: Spontaneous
  Country: US (occurrence: US)
  Receive Date: 20230506
  Receipt Date: 20230607
  Transmission Date: 20230722
  Serious: Yes (Other)
  Sender: FDA-Public Use
  Company Number: US-002147023-NVSC2023US099533

PATIENT
  Age: 80 Year
  Sex: Female
  Weight: 79 kg

DRUGS (1)
  1. LEQVIO [Suspect]
     Active Substance: INCLISIRAN SODIUM
     Indication: Low density lipoprotein increased
     Dosage: 284 MG, OTHER (INITIAL, 3 MTHS, EVERY 6 MTHS)
     Route: 058
     Dates: start: 20230127, end: 20230424

REACTIONS (12)
  - Cerebrovascular accident [Unknown]
  - Blindness transient [Recovered/Resolved]
  - Carotid artery stenosis [Unknown]
  - Mesenteric vascular insufficiency [Unknown]
  - Urticaria [Recovered/Resolved]
  - Nausea [Recovered/Resolved]
  - Tremor [Recovered/Resolved]
  - Diarrhoea [Recovered/Resolved]
  - Cough [Recovered/Resolved]
  - Headache [Recovered/Resolved]
  - Pain in extremity [Recovered/Resolved]
  - Carotid bruit [Unknown]

NARRATIVE: CASE EVENT DATE: 20230127
